FAERS Safety Report 9425034 (Version 1)
Quarter: 2013Q3

REPORT INFORMATION
  Report Type: Spontaneous
  Country: GB (occurrence: GB)
  Receive Date: 20130729
  Receipt Date: 20130729
  Transmission Date: 20140515
  Serious: Yes (Life-Threatening, Other)
  Sender: FDA-Public Use
  Company Number: GB-TEVA-420173ISR

PATIENT
  Age: 46 Year
  Sex: Male

DRUGS (11)
  1. TERBINAFINE [Suspect]
     Indication: ONYCHOMYCOSIS
     Dosage: 250 MILLIGRAM DAILY;
     Route: 048
     Dates: start: 20130409, end: 20130513
  2. LANSOPRAZOLE [Concomitant]
     Dosage: 30 MILLIGRAM DAILY; IN THE MORNING
  3. ATENOLOL [Concomitant]
     Dosage: 50 MILLIGRAM DAILY; IN THE MORNING
  4. HYDROXYCHLOROQUINE [Concomitant]
     Dosage: 200 MILLIGRAM DAILY;
  5. METHOTREXATE [Concomitant]
  6. ALFUZOSIN [Concomitant]
     Dosage: 10 MILLIGRAM DAILY;
  7. DOVOBET [Concomitant]
     Dosage: 2 DOSAGE FORMS DAILY;
  8. MIRTAZAPINE [Concomitant]
     Dosage: 30 MILLIGRAM DAILY; AT NIGHT
  9. FOLIC ACID [Concomitant]
  10. ETORICOXIB [Concomitant]
     Dosage: 90 MILLIGRAM DAILY;
  11. REMEDEINE [Concomitant]
     Dosage: 1-2 AS REQUIRED

REACTIONS (7)
  - Erythrodermic psoriasis [Recovering/Resolving]
  - Rash generalised [Recovering/Resolving]
  - Skin exfoliation [Recovering/Resolving]
  - Miliaria [Recovering/Resolving]
  - Rash pruritic [Recovering/Resolving]
  - Feeling hot [Recovering/Resolving]
  - Eye swelling [Recovering/Resolving]
